FAERS Safety Report 6266424-5 (Version None)
Quarter: 2009Q3

REPORT INFORMATION
  Report Type: 
  Country: None (occurrence: None)
  Receive Date: 20090713
  Receipt Date: 20080626
  Transmission Date: 20100115
  Serious: No
  Sender: FDA-Public Use
  Company Number: IE-AVENTIS-200816000GDDC

PATIENT
  Sex: Female

DRUGS (1)
  1. ARAVA [Suspect]
     Indication: RENAL IMPAIRMENT
     Dosage: DOSE: UNK

REACTIONS (1)
  - OFF LABEL USE [None]
